FAERS Safety Report 6477635-8 (Version None)
Quarter: 2009Q4

REPORT INFORMATION
  Report Type: 
  Country: None (occurrence: None)
  Receive Date: 20091207
  Receipt Date: 20091016
  Transmission Date: 20100525
  Serious: No
  Sender: FDA-Public Use
  Company Number: US-BAYER-200936320NA

PATIENT
  Age: 81 Year
  Sex: Female

DRUGS (4)
  1. ULTRAVIST PHARMACY BULK PACKAGE [Suspect]
     Indication: COMPUTERISED TOMOGRAM
     Dosage: TOTAL DAILY DOSE: 100 ML
     Route: 042
     Dates: start: 20090314, end: 20090314
  2. COUMADIN [Concomitant]
  3. BENICAR [Concomitant]
  4. SPIRIVA [Concomitant]

REACTIONS (1)
  - URTICARIA [None]
